FAERS Safety Report 5425631-1 (Version None)
Quarter: 2007Q3

REPORT INFORMATION
  Report Type: 
  Country: None (occurrence: None)
  Receive Date: 20070824
  Receipt Date: 20070814
  Transmission Date: 20080115
  Serious: Yes (Life-Threatening)
  Sender: FDA-Public Use
  Company Number: PFIZER INC-2007067219

PATIENT
  Sex: Female
  Weight: 55 kg

DRUGS (12)
  1. LYRICA [Suspect]
     Indication: PAIN
     Route: 048
     Dates: start: 20070726, end: 20070727
  2. OXYCODONE HCL [Concomitant]
     Route: 048
  3. PRIMPERAN INJ [Concomitant]
     Route: 048
  4. OMEPRAZOLE [Concomitant]
     Route: 048
  5. FUROSEMIDE [Concomitant]
  6. ACENOCOUMAROL [Concomitant]
  7. CELEBREX [Concomitant]
  8. LACTULOSE [Concomitant]
  9. KLEAN PREP [Concomitant]
  10. MICONAZOLE [Concomitant]
  11. HYDROCORTISON [Concomitant]
  12. TRIAMCINOLONE [Concomitant]

REACTIONS (5)
  - ANXIETY [None]
  - MALAISE [None]
  - MUSCULAR WEAKNESS [None]
  - PARALYSIS [None]
  - SALIVARY HYPERSECRETION [None]
